FAERS Safety Report 8013673-1 (Version None)
Quarter: 2011Q4

REPORT INFORMATION
  Report Type: 
  Country: None (occurrence: None)
  Receive Date: 20111227
  Receipt Date: 20111227
  Transmission Date: 20120403
  Serious: Yes (Disabling)
  Sender: FDA-Public Use
  Company Number: None

PATIENT
  Age: 19 Year
  Sex: Male
  Weight: 74.8435 kg

DRUGS (1)
  1. PROPECIA [Suspect]
     Indication: ALOPECIA
     Dosage: 1 MG, 1/PER DAY ONLY 7 PILLS
     Dates: start: 20080801, end: 20080901

REACTIONS (10)
  - ANXIETY [None]
  - ERECTILE DYSFUNCTION [None]
  - BLOOD TESTOSTERONE INCREASED [None]
  - COGNITIVE DISORDER [None]
  - LOSS OF LIBIDO [None]
  - EJACULATION FAILURE [None]
  - FEELING ABNORMAL [None]
  - BLOOD OESTROGEN INCREASED [None]
  - SEMEN ANALYSIS ABNORMAL [None]
  - COMPLETED SUICIDE [None]
